FAERS Safety Report 11428129 (Version 1)
Quarter: 2015Q3

REPORT INFORMATION
  Report Type: Spontaneous
  Country: US (occurrence: US)
  Receive Date: 20150828
  Receipt Date: 20150828
  Transmission Date: 20151125
  Serious: No
  Sender: FDA-Public Use
  Company Number: US-ROCHE-1258874

PATIENT
  Sex: Male

DRUGS (2)
  1. PEGASYS [Suspect]
     Active Substance: PEGINTERFERON ALFA-2A
     Indication: CHRONIC HEPATITIS C
     Route: 065
     Dates: start: 20130802
  2. RIBAVIRIN. [Suspect]
     Active Substance: RIBAVIRIN
     Indication: CHRONIC HEPATITIS C
     Dosage: 1000 MG DAILY DIVIDED DOSES
     Route: 065
     Dates: start: 20130802

REACTIONS (8)
  - Anorectal disorder [Unknown]
  - Chest pain [Unknown]
  - Dyspepsia [Unknown]
  - Anal pruritus [Unknown]
  - Feeling abnormal [Unknown]
  - Headache [Unknown]
  - Tooth infection [Unknown]
  - Abdominal pain upper [Unknown]
